FAERS Safety Report 8513915-X (Version None)
Quarter: 2012Q3

REPORT INFORMATION
  Report Type: 
  Country: None (occurrence: None)
  Receive Date: 20120717
  Receipt Date: 20120705
  Transmission Date: 20120928
  Serious: Yes (Hospitalization, Other)
  Sender: FDA-Public Use
  Company Number: JP-BAYER-200914144BYL

PATIENT
  Age: 60 Year
  Sex: Male
  Weight: 57 kg

DRUGS (6)
  1. CYTOTEC [Concomitant]
     Indication: GASTRIC ULCER
     Dosage: 200 MG, QD
     Route: 048
     Dates: end: 20091021
  2. NEXAVAR [Suspect]
     Dosage: 400 MG, QD
     Route: 048
     Dates: start: 20091111, end: 20091209
  3. LANSOPRAZOLE [Concomitant]
     Indication: GASTRIC ULCER
     Dosage: 15 MG, QD
     Route: 048
     Dates: start: 20090930, end: 20091021
  4. UREPEARL [Concomitant]
     Indication: PROPHYLAXIS
     Dosage: 3 G, QD
     Route: 061
     Dates: start: 20090722
  5. NEXAVAR [Suspect]
     Indication: HEPATIC NEOPLASM MALIGNANT
     Dosage: 800 MG, QD
     Route: 048
     Dates: start: 20090722, end: 20091007
  6. FAMOTIDINE [Concomitant]
     Indication: GASTRIC ULCER
     Dosage: 40 MG, QD
     Route: 048
     Dates: end: 20090930

REACTIONS (6)
  - TUMOUR HAEMORRHAGE [None]
  - JAUNDICE [None]
  - PALMAR-PLANTAR ERYTHRODYSAESTHESIA SYNDROME [None]
  - MUSCULOSKELETAL PAIN [None]
  - DRUG-INDUCED LIVER INJURY [None]
  - HEPATIC FUNCTION ABNORMAL [None]
